FAERS Safety Report 21068847 (Version 2)
Quarter: 2024Q2

REPORT INFORMATION
  Report Type: Other
  Country: CZ (occurrence: CZ)
  Receive Date: 20220712
  Receipt Date: 20240404
  Transmission Date: 20240716
  Serious: Yes (Other)
  Sender: FDA-Public Use
  Company Number: CZ-ROCHE-3069187

PATIENT
  Age: 16 Year
  Sex: Female

DRUGS (7)
  1. RITUXIMAB [Suspect]
     Active Substance: RITUXIMAB
     Indication: Glomerulonephritis
     Route: 065
  2. PREDNISONE [Suspect]
     Active Substance: PREDNISONE
     Indication: Glomerulonephritis
     Dosage: 1 MG/KG/DAY
     Route: 048
  3. METHYLPREDNISOLONE [Suspect]
     Active Substance: METHYLPREDNISOLONE
     Indication: Glomerulonephritis
     Dosage: THREE PULSES
     Route: 065
  4. VANCOMYCIN [Concomitant]
     Active Substance: VANCOMYCIN
     Indication: Enterococcal infection
  5. VANCOMYCIN [Concomitant]
     Active Substance: VANCOMYCIN
     Indication: Staphylococcal infection
  6. CEFTAZIDIME [Concomitant]
     Active Substance: CEFTAZIDIME
     Indication: Enterococcal infection
  7. CEFTAZIDIME [Concomitant]
     Active Substance: CEFTAZIDIME
     Indication: Staphylococcal infection

REACTIONS (3)
  - Device related sepsis [Unknown]
  - Off label use [Unknown]
  - Ophthalmic herpes simplex [Unknown]
